FAERS Safety Report 12035270 (Version 1)
Quarter: 2016Q1

REPORT INFORMATION
  Report Type: Other
  Country: US (occurrence: US)
  Receive Date: 20160207
  Receipt Date: 20160207
  Transmission Date: 20160526
  Serious: No
  Sender: FDA-Public Use
  Company Number: US-ACORDA-ACO_101919_2014

PATIENT
  Age: 63 Year
  Sex: Female
  Weight: 58.96 kg

DRUGS (19)
  1. AMPYRA [Suspect]
     Active Substance: DALFAMPRIDINE
     Indication: GAIT DISTURBANCE
     Dosage: 10 MG, BID
     Route: 048
     Dates: start: 201312, end: 20140204
  2. AMLODIPINE [Concomitant]
     Active Substance: AMLODIPINE BESYLATE
     Indication: PRODUCT USED FOR UNKNOWN INDICATION
     Dosage: 5 MG, QPM
     Route: 065
  3. AUBAGIO [Concomitant]
     Active Substance: TERIFLUNOMIDE
     Indication: MULTIPLE SCLEROSIS
     Dosage: 14MG, QD
     Route: 048
     Dates: start: 201312
  4. OXYTROL [Concomitant]
     Active Substance: OXYBUTYNIN
     Indication: PRODUCT USED FOR UNKNOWN INDICATION
     Dosage: UNK,UNK
     Route: 065
  5. TOPROL XL [Concomitant]
     Active Substance: METOPROLOL SUCCINATE
     Indication: HYPERTENSION
     Dosage: 50 MG, BID
     Route: 048
  6. DETROL LA [Concomitant]
     Active Substance: TOLTERODINE TARTRATE
     Indication: HYPERTONIC BLADDER
     Dosage: 4 MG, QAM
     Route: 048
  7. METOPROLOL SUCCINATE. [Concomitant]
     Active Substance: METOPROLOL SUCCINATE
     Indication: PRODUCT USED FOR UNKNOWN INDICATION
     Dosage: 50 MG, BID
     Route: 065
  8. ASPIRIN. [Concomitant]
     Active Substance: ASPIRIN
     Indication: PRODUCT USED FOR UNKNOWN INDICATION
     Dosage: 325 MG, QD
     Route: 065
  9. GELNIQUE [Concomitant]
     Active Substance: OXYBUTYNIN CHLORIDE
     Indication: PRODUCT USED FOR UNKNOWN INDICATION
  10. NORVASC [Concomitant]
     Active Substance: AMLODIPINE BESYLATE
     Indication: HYPERTENSION
     Dosage: 5 MG, QD
     Route: 048
  11. PRAVASTATIN [Concomitant]
     Active Substance: PRAVASTATIN\PRAVASTATIN SODIUM
     Indication: LIPIDS INCREASED
     Dosage: 40 MG, HS
     Route: 048
  12. REBIF [Concomitant]
     Active Substance: INTERFERON BETA-1A
     Indication: PRODUCT USED FOR UNKNOWN INDICATION
     Dosage: EVERY 3 DAYS
     Route: 051
     Dates: end: 201312
  13. TYLENOL [Concomitant]
     Active Substance: ACETAMINOPHEN
     Indication: PRODUCT USED FOR UNKNOWN INDICATION
     Dosage: UNK,UNK
     Route: 065
  14. ATENOLOL. [Concomitant]
     Active Substance: ATENOLOL
     Indication: PRODUCT USED FOR UNKNOWN INDICATION
     Dosage: UNK,UNK
     Route: 065
  15. VITAMIN D AND ANALOGUES [Concomitant]
     Active Substance: CHOLECALCIFEROL
     Indication: PRODUCT USED FOR UNKNOWN INDICATION
     Dosage: 1000 UNK, QD
     Route: 065
  16. BACLOFEN. [Concomitant]
     Active Substance: BACLOFEN
     Indication: MUSCLE SPASTICITY
     Dosage: 10 MG, BID
     Route: 065
  17. CALCIUM/VITAMIN D [Concomitant]
     Active Substance: CALCIUM\VITAMIN D
     Indication: PRODUCT USED FOR UNKNOWN INDICATION
     Dosage: 2000 MG, QD
     Route: 065
  18. MULTIVITAMIN [Concomitant]
     Active Substance: VITAMINS
     Indication: PRODUCT USED FOR UNKNOWN INDICATION
     Dosage: 1UNK, 1 TABLET QD
     Route: 065
  19. LEVOTHYROXINE SODIUM. [Concomitant]
     Active Substance: LEVOTHYROXINE SODIUM
     Indication: HYPOTHYROIDISM
     Dosage: 25 ?G, QD
     Route: 048

REACTIONS (2)
  - Urinary tract infection [Recovered/Resolved]
  - Urinary tract infection [Unknown]

NARRATIVE: CASE EVENT DATE: 20131228
